FAERS Safety Report 20196270 (Version 1)
Quarter: 2021Q4

REPORT INFORMATION
  Report Type: Spontaneous
  Country: FR (occurrence: FR)
  Receive Date: 20211216
  Receipt Date: 20211216
  Transmission Date: 20220303
  Serious: Yes (Other)
  Sender: FDA-Public Use
  Company Number: FR-TEVA-2021-FR-1982736

PATIENT
  Age: 47 Year
  Sex: Male

DRUGS (1)
  1. FINASTERIDE [Suspect]
     Active Substance: FINASTERIDE
     Indication: Alopecia
     Dosage: 1 MILLIGRAM DAILY;
     Route: 065
     Dates: end: 20211008

REACTIONS (3)
  - Pulmonary embolism [Recovered/Resolved]
  - Prostatic specific antigen decreased [Unknown]
  - Phlebitis [Unknown]

NARRATIVE: CASE EVENT DATE: 20210101
